FAERS Safety Report 8939999 (Version 1)
Quarter: 2012Q4

REPORT INFORMATION
  Report Type: 
  Country: US (occurrence: US)
  Receive Date: 20121201
  Receipt Date: 20121201
  Transmission Date: 20130627
  Serious: Yes (Hospitalization)
  Sender: FDA-Public Use
  Company Number: US-US-EMD SERONO, INC.-7168123

PATIENT
  Age: 34 None
  Sex: Female
  Weight: 110 kg

DRUGS (10)
  1. REBIF [Suspect]
     Indication: MULTIPLE SCLEROSIS
     Route: 058
     Dates: start: 20120612
  2. LAMICTAL [Concomitant]
     Indication: CONVULSION
     Route: 048
     Dates: start: 20110906
  3. ZOLOFT [Concomitant]
     Indication: DEPRESSION
     Dates: start: 20120411
  4. ZOLOFT [Concomitant]
     Indication: ANXIETY
  5. XANAX [Concomitant]
     Indication: DEPRESSION
     Dosage: as needed
     Route: 048
     Dates: start: 20120411
  6. XANAX [Concomitant]
     Indication: ANXIETY
  7. PRAVACHOL [Concomitant]
     Indication: VITAMIN B12 DEFICIENCY
     Route: 048
     Dates: start: 20120106
  8. TOPAMAX [Concomitant]
     Indication: MIGRAINE
     Dosage: bedtime
     Dates: start: 20120106
  9. GABAPENTIN [Concomitant]
     Indication: MIGRAINE
     Route: 048
     Dates: start: 20120629
  10. PROMETHAZINE HYDROCHLORIDE [Concomitant]
     Indication: PRODUCT USED FOR UNKNOWN INDICATION
     Dosage: at bedtime
     Route: 048
     Dates: start: 20120411

REACTIONS (3)
  - Hypertension [Recovered/Resolved]
  - Multiple sclerosis relapse [Recovered/Resolved]
  - Depression [Recovered/Resolved]
